FAERS Safety Report 5531778-1 (Version None)
Quarter: 2007Q4

REPORT INFORMATION
  Report Type: 
  Country: None (occurrence: None)
  Receive Date: 20071203
  Receipt Date: 20071122
  Transmission Date: 20080405
  Serious: Yes (Disabling)
  Sender: FDA-Public Use
  Company Number: JP-ASTRAZENECA-2007AP07538

PATIENT
  Age: 65 Year
  Sex: Female
  Weight: 41 kg

DRUGS (12)
  1. IRESSA [Suspect]
     Indication: LUNG ADENOCARCINOMA
     Route: 048
     Dates: start: 20070823, end: 20070918
  2. IRESSA [Suspect]
     Route: 048
     Dates: start: 20071002
  3. MAGNESIUM OXIDE [Concomitant]
     Indication: CONSTIPATION
     Dosage: FINE GRAIN
     Route: 048
     Dates: start: 20070201
  4. NOVAMIN [Concomitant]
     Route: 048
     Dates: start: 20070201
  5. OXYCONTIN [Concomitant]
     Route: 048
     Dates: start: 20070201
  6. PRIMPERAN INJ [Concomitant]
     Route: 048
     Dates: start: 20070208, end: 20070926
  7. SPELEAR [Concomitant]
     Route: 048
     Dates: start: 20070222, end: 20071023
  8. OMEPRAL [Concomitant]
     Route: 048
     Dates: start: 20070615, end: 20071023
  9. GASTER [Concomitant]
     Route: 048
     Dates: start: 20071024
  10. LOXONIN [Concomitant]
     Route: 048
  11. MUCOSTA [Concomitant]
     Route: 048
  12. TRYPTANOL [Concomitant]

REACTIONS (1)
  - DERMATITIS ACNEIFORM [None]
